FAERS Safety Report 25167873 (Version 1)
Quarter: 2025Q2

REPORT INFORMATION
  Report Type: Spontaneous
  Country: US (occurrence: None)
  Receive Date: 20250407
  Receipt Date: 20250407
  Transmission Date: 20250717
  Serious: Yes (Other)
  Sender: FDA-CTU
  Company Number: None

PATIENT
  Sex: Female

DRUGS (1)
  1. AZITHROMYCIN [Suspect]
     Active Substance: AZITHROMYCIN

REACTIONS (8)
  - Palpitations [None]
  - Anxiety [None]
  - Depersonalisation/derealisation disorder [None]
  - Neuralgia [None]
  - Headache [None]
  - Decreased appetite [None]
  - Hyperacusis [None]
  - Tachyphrenia [None]

NARRATIVE: CASE EVENT DATE: 20250405
